FAERS Safety Report 7805610-7 (Version None)
Quarter: 2011Q4

REPORT INFORMATION
  Report Type: 
  Country: None (occurrence: None)
  Receive Date: 20111010
  Receipt Date: 20110929
  Transmission Date: 20120403
  Serious: Yes (Congenital Anomaly, Other)
  Sender: FDA-Public Use
  Company Number: AU-ASTRAZENECA-2011SE58612

PATIENT
  Age: 18 Month

DRUGS (1)
  1. ATACAND [Suspect]
     Route: 048

REACTIONS (4)
  - ADVERSE EVENT [None]
  - MATERNAL EXPOSURE DURING PREGNANCY [None]
  - KIDNEY MALFORMATION [None]
  - RENAL FAILURE [None]
